FAERS Safety Report 8047759-2 (Version None)
Quarter: 2012Q1

REPORT INFORMATION
  Report Type: 
  Country: None (occurrence: None)
  Receive Date: 20120116
  Receipt Date: 20120109
  Transmission Date: 20120608
  Serious: Yes (Hospitalization)
  Sender: FDA-Public Use
  Company Number: FR-ABBOTT-12P-056-0891295-00

PATIENT
  Age: 49 Year
  Sex: Male

DRUGS (4)
  1. DILTIAZEM HCL [Suspect]
     Indication: PRODUCT USED FOR UNKNOWN INDICATION
     Dosage: 300 LP ONCE
     Route: 048
  2. FENOFIBRATE [Suspect]
     Indication: HYPERCHOLESTEROLAEMIA
     Dosage: ONCE
     Route: 048
     Dates: start: 20100801
  3. ASPIRIN [Suspect]
     Indication: PRODUCT USED FOR UNKNOWN INDICATION
     Dosage: ONCE
     Route: 048
  4. VASTAREL [Suspect]
     Indication: PRODUCT USED FOR UNKNOWN INDICATION
     Dosage: ONCE
     Route: 048

REACTIONS (6)
  - SJOGREN'S SYNDROME [None]
  - ANGIOEDEMA [None]
  - LYMPHOCYTIC LEUKAEMIA [None]
  - CRYOGLOBULINAEMIA [None]
  - BLOOD IMMUNOGLOBULIN M INCREASED [None]
  - BLOOD IMMUNOGLOBULIN G DECREASED [None]
